FAERS Safety Report 9453150 (Version 8)
Quarter: 2016Q1

REPORT INFORMATION
  Report Type: Report from Study
  Country: TW (occurrence: TW)
  Receive Date: 20130812
  Receipt Date: 20160331
  Transmission Date: 20160526
  Serious: Yes (Life-Threatening, Hospitalization, Other)
  Sender: FDA-Public Use
  Company Number: PHHY2013TW084618

PATIENT
  Age: 61 Year
  Sex: Female
  Weight: 62 kg

DRUGS (13)
  1. TASIGNA [Suspect]
     Active Substance: NILOTINIB
     Dosage: 600 MG, UNK
     Route: 048
     Dates: start: 20130513, end: 20130702
  2. ESOMEPRAZOLE [Concomitant]
     Active Substance: ESOMEPRAZOLE
     Indication: PRODUCT USED FOR UNKNOWN INDICATION
     Dosage: 40 MG, UNK
     Route: 048
     Dates: start: 20130817
  3. METOCLOPRAMIDE. [Concomitant]
     Active Substance: METOCLOPRAMIDE
     Indication: PRODUCT USED FOR UNKNOWN INDICATION
     Dosage: 10 MG, UNK
     Route: 042
     Dates: start: 20130803, end: 20130803
  4. PHYTONADIONE. [Concomitant]
     Active Substance: PHYTONADIONE
     Indication: PRODUCT USED FOR UNKNOWN INDICATION
     Dosage: 10 MG, UNK
     Route: 042
     Dates: start: 20130804, end: 20130806
  5. TRANEXAMIC ACID. [Concomitant]
     Active Substance: TRANEXAMIC ACID
     Indication: PRODUCT USED FOR UNKNOWN INDICATION
     Dosage: 500 MG, UNK
     Route: 042
     Dates: start: 20130811, end: 20130812
  6. METOCLOPRAMIDE. [Concomitant]
     Active Substance: METOCLOPRAMIDE
     Dosage: 10 MG, UNK
     Route: 042
     Dates: start: 20130812, end: 20130815
  7. TASIGNA [Suspect]
     Active Substance: NILOTINIB
     Indication: CHRONIC MYELOID LEUKAEMIA
     Dosage: 600 MG, BID
     Route: 048
     Dates: start: 20130306, end: 20130401
  8. FLUMETHOLON [Concomitant]
     Active Substance: FLUOROMETHOLONE
     Indication: VITREOUS HAEMORRHAGE
     Dosage: UNK
     Route: 047
     Dates: start: 20130408
  9. CHLORPHENAMINE [Concomitant]
     Active Substance: CHLORPHENIRAMINE MALEATE
     Indication: PROPHYLAXIS
     Dosage: 5 MG, UNK
     Route: 042
     Dates: start: 20130807, end: 20130807
  10. TASIGNA [Suspect]
     Active Substance: NILOTINIB
     Dosage: 300 MG, UNK
     Route: 048
     Dates: start: 20130703, end: 20130717
  11. RHIN [Concomitant]
     Indication: PRODUCT USED FOR UNKNOWN INDICATION
     Dosage: 1 DF, UNK
     Route: 048
     Dates: start: 20130603, end: 20130608
  12. GENTAMYCIN//GENTAMICIN [Concomitant]
     Indication: VITREOUS HAEMORRHAGE
     Dosage: UNK
     Route: 047
     Dates: start: 20130408
  13. ACETYLCYSTEINE. [Concomitant]
     Active Substance: ACETYLCYSTEINE
     Indication: PRODUCT USED FOR UNKNOWN INDICATION
     Dosage: 600 MG, UNK
     Route: 048
     Dates: start: 20130520, end: 20130603

REACTIONS (21)
  - Febrile neutropenia [Recovered/Resolved]
  - Haemorrhage [Unknown]
  - White blood cell count increased [Unknown]
  - Pyrexia [Recovered/Resolved]
  - C-reactive protein increased [Recovering/Resolving]
  - Diarrhoea infectious [Recovering/Resolving]
  - Pancytopenia [Recovered/Resolved]
  - Fatigue [Recovering/Resolving]
  - Alanine aminotransferase increased [Recovered/Resolved]
  - Leukopenia [Unknown]
  - Thrombocytopenia [Recovered/Resolved]
  - Chills [Recovered/Resolved]
  - Aspartate aminotransferase increased [Recovered/Resolved]
  - Jaundice [Recovering/Resolving]
  - Hypertension [Not Recovered/Not Resolved]
  - Diarrhoea [Recovering/Resolving]
  - Pancytopenia [Recovered/Resolved]
  - Alanine aminotransferase increased [Recovered/Resolved]
  - Gastroenteritis viral [Recovered/Resolved]
  - Thrombocytopenia [Recovered/Resolved]
  - Abdominal pain upper [Not Recovered/Not Resolved]

NARRATIVE: CASE EVENT DATE: 20130401
